FAERS Safety Report 6355568-5 (Version None)
Quarter: 2009Q3

REPORT INFORMATION
  Report Type: 
  Country: None (occurrence: None)
  Receive Date: 20090910
  Receipt Date: 20090827
  Transmission Date: 20100115
  Serious: Yes (Other)
  Sender: FDA-Public Use
  Company Number: 2009AP003284

PATIENT
  Age: 54 Year
  Sex: Female

DRUGS (9)
  1. PAROXETINE HCL [Suspect]
     Indication: ANXIETY
     Dosage: 45 MG; QD; PO, 40 MG; QD; PO
     Route: 048
     Dates: start: 20060714
  2. PAROXETINE HCL [Suspect]
     Indication: DEPRESSION
     Dosage: 45 MG; QD; PO, 40 MG; QD; PO
     Route: 048
     Dates: start: 20060714
  3. PAROXETINE HCL [Suspect]
     Indication: ANXIETY
     Dosage: 45 MG; QD; PO, 40 MG; QD; PO
     Route: 048
     Dates: start: 20090725
  4. PAROXETINE HCL [Suspect]
     Indication: DEPRESSION
     Dosage: 45 MG; QD; PO, 40 MG; QD; PO
     Route: 048
     Dates: start: 20090725
  5. GUANFACINE HYDROCHLORIDE [Concomitant]
  6. GABAPENTIN [Concomitant]
  7. LOVASTATIN [Concomitant]
  8. NAPROXEN [Concomitant]
  9. ALPRAZOLAM [Concomitant]

REACTIONS (10)
  - ADVERSE EVENT [None]
  - AGITATION [None]
  - AKATHISIA [None]
  - ANXIETY [None]
  - DIZZINESS [None]
  - DRUG INEFFECTIVE [None]
  - NAUSEA [None]
  - PALPITATIONS [None]
  - POSTMENOPAUSAL HAEMORRHAGE [None]
  - PRODUCT QUALITY ISSUE [None]
